FAERS Safety Report 11676749 (Version 1)
Quarter: 2015Q4

REPORT INFORMATION
  Report Type: Spontaneous
  Country: US (occurrence: US)
  Receive Date: 20151027
  Receipt Date: 20151027
  Transmission Date: 20160304
  Serious: No
  Sender: FDA-Public Use
  Company Number: US-ELI_LILLY_AND_COMPANY-US201008002855

PATIENT
  Age: 76 Year
  Sex: Female

DRUGS (2)
  1. FORTEO [Suspect]
     Active Substance: TERIPARATIDE
     Indication: OSTEOPOROSIS
     Dosage: 20 UG, DAILY (1/D)
     Route: 058
     Dates: start: 20090204
  2. FORTEO [Suspect]
     Active Substance: TERIPARATIDE
     Dosage: 20 UG, DAILY (1/D)

REACTIONS (9)
  - Fall [Unknown]
  - Contusion [Unknown]
  - Back pain [Unknown]
  - Nervousness [Unknown]
  - Dizziness [Unknown]
  - Neck injury [Recovered/Resolved]
  - Joint dislocation [Unknown]
  - Spinal pain [Unknown]
  - Neck injury [Unknown]

NARRATIVE: CASE EVENT DATE: 20100627
